FAERS Safety Report 4558317-6 (Version None)
Quarter: 2005Q1

REPORT INFORMATION
  Report Type: 
  Country: None (occurrence: None)
  Receive Date: 20050103
  Receipt Date: 20041001
  Transmission Date: 20050727
  Serious: Yes (Other)
  Sender: FDA-Public Use
  Company Number: 2004UW20711

PATIENT
  Age: 50 Year
  Sex: Female
  Weight: 98.4306 kg

DRUGS (4)
  1. CRESTOR [Suspect]
     Indication: BLOOD CHOLESTEROL INCREASED
     Dosage: 10 MG QD PO
     Route: 048
     Dates: start: 20040921, end: 20040925
  2. CRESTOR [Suspect]
     Indication: WEIGHT DECREASED
     Dosage: 10 MG QD PO
     Route: 048
     Dates: start: 20040921, end: 20040925
  3. NADOLOL [Concomitant]
  4. XANAX [Concomitant]

REACTIONS (1)
  - PHARYNGOLARYNGEAL PAIN [None]
